FAERS Safety Report 4980855-2 (Version None)
Quarter: 2006Q2

REPORT INFORMATION
  Report Type: 
  Country: None (occurrence: None)
  Receive Date: 20060424
  Receipt Date: 20051215
  Transmission Date: 20061013
  Serious: Yes (Death, Hospitalization)
  Sender: FDA-Public Use
  Company Number: US-MERCK-0512USA02421

PATIENT
  Age: 56 Year
  Sex: Female

DRUGS (9)
  1. VIOXX [Suspect]
     Route: 048
     Dates: start: 19990101
  2. AMITRIPTYLIN [Concomitant]
     Route: 065
  3. GLUCOVANCE [Concomitant]
     Route: 065
  4. LASIX [Concomitant]
     Route: 065
  5. LISINOPRIL [Concomitant]
     Route: 065
  6. NIASPAN [Concomitant]
     Route: 065
  7. CRESTOR [Concomitant]
     Route: 065
  8. COREG [Concomitant]
     Route: 065
  9. SPIRONOLACTONE [Concomitant]
     Route: 065

REACTIONS (7)
  - ARTERIOSCLEROSIS [None]
  - ATRIAL FLUTTER [None]
  - CARDIAC ARREST [None]
  - CATARACT [None]
  - CORONARY ARTERY SURGERY [None]
  - HYPOXIC ENCEPHALOPATHY [None]
  - PLEURAL EFFUSION [None]
